FAERS Safety Report 10012181 (Version 2)
Quarter: 2014Q2

REPORT INFORMATION
  Report Type: Spontaneous
  Country: IT (occurrence: IT)
  Receive Date: 20140314
  Receipt Date: 20140401
  Transmission Date: 20141212
  Serious: Yes (Hospitalization)
  Sender: FDA-Public Use
  Company Number: IT-SA-2014SA029198

PATIENT
  Age: 63 Year
  Sex: Male

DRUGS (3)
  1. CLEXANE [Suspect]
     Indication: ATRIAL FIBRILLATION
     Dosage: DOSE:1 UNIT(S)
     Route: 058
     Dates: start: 20130101, end: 20140203
  2. CONCOR [Concomitant]
     Route: 048
  3. PRADIF [Concomitant]
     Route: 048

REACTIONS (2)
  - Anuria [Unknown]
  - Haematuria [Unknown]
